FAERS Safety Report 8044558-2 (Version None)
Quarter: 2012Q1

REPORT INFORMATION
  Report Type: 
  Country: None (occurrence: None)
  Receive Date: 20120113
  Receipt Date: 20120104
  Transmission Date: 20120608
  Serious: Yes (Hospitalization)
  Sender: FDA-Public Use
  Company Number: FR-SANOFI-AVENTIS-2012SA000848

PATIENT
  Age: 61 Year
  Sex: Female

DRUGS (8)
  1. LOVENOX [Suspect]
     Route: 058
     Dates: start: 20111102, end: 20111103
  2. ALPRAZOLAM [Concomitant]
     Route: 048
  3. ACETAMINOPHEN [Concomitant]
     Route: 048
  4. AMLODIPINE [Concomitant]
     Route: 048
     Dates: start: 20110101
  5. HEPARIN SODIUM [Suspect]
     Route: 042
     Dates: start: 20111025, end: 20111102
  6. NICARDIPINE HCL [Concomitant]
     Route: 048
     Dates: start: 20111101, end: 20111103
  7. ACETAMINOPHEN AND TRAMADOL HCL [Concomitant]
     Route: 048
  8. PANTOPRAZOLE [Concomitant]
     Route: 042

REACTIONS (3)
  - THROMBOSIS [None]
  - ARTERIAL THROMBOSIS LIMB [None]
  - HEPARIN-INDUCED THROMBOCYTOPENIA [None]
